FAERS Safety Report 21527080 (Version 1)
Quarter: 2022Q4

REPORT INFORMATION
  Report Type: Other
  Country: None (occurrence: CA)
  Receive Date: 20221031
  Receipt Date: 20221031
  Transmission Date: 20230113
  Serious: Yes (Hospitalization)
  Sender: FDA-Public Use
  Company Number: CA-Ajanta Pharma USA Inc.-2134303

PATIENT
  Age: 15 Year
  Sex: Female
  Weight: 54 kg

DRUGS (7)
  1. AMLODIPINE\OLMESARTAN [Suspect]
     Active Substance: AMLODIPINE\OLMESARTAN
     Indication: Product used for unknown indication
  2. LANSOPRAZOLE [Suspect]
     Active Substance: LANSOPRAZOLE
  3. CANDESARTAN [Suspect]
     Active Substance: CANDESARTAN
  4. HYDROCHLOROTHIAZIDE [Suspect]
     Active Substance: HYDROCHLOROTHIAZIDE
  5. MIRTAZAPINE [Suspect]
     Active Substance: MIRTAZAPINE
  6. FLUOXETINE [Suspect]
     Active Substance: FLUOXETINE HYDROCHLORIDE
  7. LORAZEPAM [Concomitant]
     Active Substance: LORAZEPAM

REACTIONS (6)
  - Acute respiratory distress syndrome [Recovered/Resolved]
  - Hypotension [Recovered/Resolved]
  - Intentional overdose [Recovered/Resolved]
  - Toxicity to various agents [Recovered/Resolved]
  - Vitamin B1 deficiency [Unknown]
  - Lactic acidosis [Recovered/Resolved]
